FAERS Safety Report 9489949 (Version 1)
Quarter: 2013Q3

REPORT INFORMATION
  Report Type: Report from Study
  Country: GR (occurrence: GR)
  Receive Date: 20130829
  Receipt Date: 20130829
  Transmission Date: 20140515
  Serious: Yes (Hospitalization)
  Sender: FDA-Public Use
  Company Number: GR-ELI_LILLY_AND_COMPANY-GR201308009219

PATIENT
  Age: 66 Year
  Sex: Male
  Weight: 75 kg

DRUGS (18)
  1. GEMZAR [Suspect]
     Indication: PANCREATIC CARCINOMA METASTATIC
     Dosage: 1900 MG, OTHER
     Route: 042
     Dates: start: 20130111, end: 20130222
  2. TEMSIROLIMUS [Suspect]
     Indication: PANCREATIC CARCINOMA METASTATIC
     Dosage: 25 MG, WEEKLY (1/W)
     Route: 042
     Dates: start: 20130111, end: 20130301
  3. ZANTAC [Concomitant]
  4. ZOFRON [Concomitant]
  5. FENISTIL [Concomitant]
  6. PREZOLON [Concomitant]
  7. ARAVA [Concomitant]
  8. ALENDRONIC ACID [Concomitant]
  9. IDEOS [Concomitant]
  10. OMEPRAZOLE [Concomitant]
  11. LEVOTHYROXINE SODIUM [Concomitant]
  12. UNIMAZOLE [Concomitant]
  13. COAPROVEL [Concomitant]
  14. CARVEDILOL [Concomitant]
  15. SALOSPIR [Concomitant]
  16. DIGOXIN [Concomitant]
  17. PRIMPERAN [Concomitant]
  18. LANTUS [Concomitant]

REACTIONS (2)
  - Infection [Not Recovered/Not Resolved]
  - Lymphopenia [Not Recovered/Not Resolved]
